FAERS Safety Report 8923116 (Version 1)
Quarter: 2012Q4

REPORT INFORMATION
  Report Type: Spontaneous
  Country: US (occurrence: None)
  Receive Date: 20121115
  Receipt Date: 20121115
  Transmission Date: 20130627
  Serious: Yes (Other)
  Sender: FDA-Public Use
  Company Number: DKLU1086249

PATIENT
  Age: 3 Year
  Sex: Male

DRUGS (3)
  1. SABRIL [Suspect]
     Indication: INFANTILE SPASMS
     Dosage: AM
     Route: 048
     Dates: start: 20121024
  2. SABRIL [Suspect]
     Indication: INFANTILE SPASMS
     Dosage: Noon
     Route: 048
     Dates: start: 20121024
  3. SABRIL [Suspect]
     Indication: INFANTILE SPASMS
     Dosage: PM
     Route: 048
     Dates: start: 20121024

REACTIONS (2)
  - Fall [None]
  - Mouth injury [None]
